FAERS Safety Report 4512560-0 (Version None)
Quarter: 2004Q4

REPORT INFORMATION
  Report Type: 
  Country: None (occurrence: None)
  Receive Date: 20041129
  Receipt Date: 20041119
  Transmission Date: 20050328
  Serious: Yes (Death, Hospitalization)
  Sender: FDA-Public Use
  Company Number: FR-MERCK-0411FRA00090

PATIENT
  Age: 63 Year
  Sex: Male

DRUGS (3)
  1. CRIXIVAN [Suspect]
     Indication: HIV INFECTION
     Route: 048
     Dates: start: 20040726, end: 20040901
  2. STAVUDINE [Suspect]
     Indication: HIV INFECTION
     Route: 048
     Dates: start: 20040726, end: 20040901
  3. TENOFOVIR DISOPROXIL FUMARATE [Suspect]
     Indication: HIV INFECTION
     Route: 048
     Dates: start: 20040726, end: 20040901

REACTIONS (13)
  - ANOREXIA [None]
  - BLOOD BILIRUBIN INCREASED [None]
  - COUGH [None]
  - DYSPNOEA [None]
  - HEPATOJUGULAR REFLUX [None]
  - INTERNATIONAL NORMALISED RATIO DECREASED [None]
  - LACTIC ACIDOSIS [None]
  - PLATELET COUNT DECREASED [None]
  - SEPTIC SHOCK [None]
  - SHOCK [None]
  - TACHYPNOEA [None]
  - THERAPY NON-RESPONDER [None]
  - WEIGHT DECREASED [None]
